FAERS Safety Report 7408754-7 (Version None)
Quarter: 2011Q2

REPORT INFORMATION
  Report Type: 
  Country: None (occurrence: None)
  Receive Date: 20110412
  Receipt Date: 20110330
  Transmission Date: 20111010
  Serious: Yes (Life-Threatening, Hospitalization)
  Sender: FDA-Public Use
  Company Number: IE-ELI_LILLY_AND_COMPANY-IE201103008795

PATIENT
  Age: 67 Year
  Sex: Male

DRUGS (1)
  1. ZYPREXA [Suspect]
     Dosage: 30 MG, QD

REACTIONS (4)
  - LEUKOPENIA [None]
  - NEUTROPENIA [None]
  - SEPSIS [None]
  - OVERDOSE [None]
